FAERS Safety Report 7041357-5 (Version None)
Quarter: 2010Q4

REPORT INFORMATION
  Report Type: 
  Country: None (occurrence: None)
  Receive Date: 20101013
  Receipt Date: 20101006
  Transmission Date: 20110411
  Serious: Yes (Hospitalization, Other)
  Sender: FDA-Public Use
  Company Number: US-JNJFOC-20101002254

PATIENT
  Sex: Female

DRUGS (4)
  1. DORIPENEM [Suspect]
     Indication: ABDOMINAL ABSCESS
     Route: 041
  2. LOVENOX [Concomitant]
  3. LOVENOX [Concomitant]
  4. HEPARIN [Concomitant]

REACTIONS (3)
  - ANAEMIA [None]
  - LEUKOPENIA [None]
  - THROMBOCYTOPENIA [None]
